FAERS Safety Report 22758253 (Version 2)
Quarter: 2024Q1

REPORT INFORMATION
  Report Type: Report from Study
  Country: AT (occurrence: AT)
  Receive Date: 20230727
  Receipt Date: 20240126
  Transmission Date: 20240410
  Serious: Yes (Hospitalization)
  Sender: FDA-Public Use
  Company Number: AT-TEVA-2023-AT-2911580

PATIENT
  Age: 61 Year
  Sex: Female
  Weight: 74 kg

DRUGS (20)
  1. LENALIDOMIDE [Suspect]
     Active Substance: LENALIDOMIDE
     Indication: Follicular lymphoma
     Route: 048
     Dates: start: 20230322, end: 20230626
  2. LENALIDOMIDE [Suspect]
     Active Substance: LENALIDOMIDE
     Indication: Follicular lymphoma
     Route: 048
     Dates: start: 20230712
  3. JANUMET [Concomitant]
     Active Substance: METFORMIN HYDROCHLORIDE\SITAGLIPTIN PHOSPHATE
     Indication: Type 2 diabetes mellitus
     Dosage: DOSAGE TEXT: DOSE(S): 50/1000 MG, 2/DAYS
     Dates: start: 2012
  4. PIOGLITAZONE [Concomitant]
     Active Substance: PIOGLITAZONE
     Indication: Type 2 diabetes mellitus
     Dosage: DOSAGE TEXT: 30 MG, EVERY 1 DAYS
     Dates: start: 2012
  5. ROSUVASTATIN CALCIUM [Concomitant]
     Active Substance: ROSUVASTATIN CALCIUM
     Indication: Cardiovascular event prophylaxis
     Dosage: DOSAGE TEXT: 10 MG, EVERY 1 DAYS
     Dates: start: 2018
  6. ALENDRONSTAD [Concomitant]
     Indication: Osteoporosis postmenopausal
     Dosage: DOSAGE TEXT: 70 MG, EVERY 1 WEEKS
     Dates: start: 2022
  7. VITAMIN D3 [Concomitant]
     Active Substance: CHOLECALCIFEROL
     Indication: Vitamin supplementation
     Dosage: DOSAGE TEXT: 1000 IU, EVERY 1 DAYS
     Dates: start: 2022
  8. Kalzium [Concomitant]
     Indication: Vitamin supplementation
     Dosage: DOSAGE TEXT: 500 MG, EVERY 1 DAYS
     Dates: start: 2022
  9. Lidaprim [Concomitant]
     Indication: Infection prophylaxis
     Dosage: TIME INTERVAL: 0.333 WEEKS: DOSAGE TEXT: 1 TABLET, 3/WEEKS
     Dates: start: 2023
  10. VALACYCLOVIR HYDROCHLORIDE [Concomitant]
     Active Substance: VALACYCLOVIR HYDROCHLORIDE
     Indication: Infection prophylaxis
     Dosage: DOSAGE TEXT: 500 MG, 2/DAYS
     Dates: start: 20230323
  11. PANTOPRAZOLE SODIUM [Concomitant]
     Active Substance: PANTOPRAZOLE SODIUM
     Indication: Gastritis prophylaxis
     Dosage: DOSAGE TEXT: 40 MG, EVERY 1 DAYS
     Dates: start: 20230323
  12. ASPIRIN [Concomitant]
     Active Substance: ASPIRIN
     Indication: Thrombosis prophylaxis
     Dosage: DOSAGE TEXT: 100 MG, EVERY 1 DAYS
     Dates: start: 20230322
  13. NOVORAPID [Concomitant]
     Active Substance: INSULIN ASPART
     Indication: Type 2 diabetes mellitus
     Dosage: DOSAGE TEXT: 1 APPLICATION, AS NECESSARY
     Dates: start: 2021
  14. Paspertin [Concomitant]
     Indication: Prophylaxis of nausea and vomiting
     Dosage: DOSAGE TEXT: 1 TABLET, AS NECESSARY
     Dates: start: 20230323
  15. Novalgin [Concomitant]
     Indication: Pain prophylaxis
     Dosage: DOSAGE TEXT: 30 DROPS, AS NECESSARY
     Dates: start: 20230323
  16. POLYETHYLENE GLYCOL 3350\POTASSIUM CHLORIDE\SODIUM BICARBONATE\SODIUM [Concomitant]
     Active Substance: POLYETHYLENE GLYCOL 3350\POTASSIUM CHLORIDE\SODIUM BICARBONATE\SODIUM CHLORIDE
     Indication: Constipation prophylaxis
     Dosage: DOSAGE TEXT: 1 SACHET, AS NECESSARY
     Dates: start: 20230323
  17. Paracodin [Concomitant]
     Indication: Cough
     Dosage: DOSAGE TEXT: 15 GTT, AS NECESSARY
     Dates: start: 20230419
  18. PULMICORT TURBUHALER [Concomitant]
     Active Substance: BUDESONIDE
     Indication: Cough
     Dosage: DOSAGE TEXT: 0.2/20 MG, 2/DAYS
     Dates: start: 20230517
  19. TRESIBA [Concomitant]
     Active Substance: INSULIN DEGLUDEC
     Indication: Type 2 diabetes mellitus
     Dosage: DOSAGE TEXT: 12 IU, EVERY 1 DAYS
     Dates: start: 20230525
  20. RITUXIMAB [Suspect]
     Active Substance: RITUXIMAB
     Indication: Follicular lymphoma
     Dosage: DOSAGE TEXT: 375 MG/M2,
     Route: 042
     Dates: start: 20230322

REACTIONS (2)
  - Pneumonia [Recovered/Resolved]
  - Parainfluenzae virus infection [Recovered/Resolved]

NARRATIVE: CASE EVENT DATE: 20230627
